FAERS Safety Report 7934719-2 (Version None)
Quarter: 2011Q4

REPORT INFORMATION
  Report Type: 
  Country: None (occurrence: None)
  Receive Date: 20111122
  Receipt Date: 20111118
  Transmission Date: 20120403
  Serious: No
  Sender: FDA-Public Use
  Company Number: US-TEVA-310147USA

PATIENT
  Sex: Female
  Weight: 76.272 kg

DRUGS (2)
  1. PLAN B ONE-STEP [Suspect]
     Indication: POST COITAL CONTRACEPTION
     Dosage: 1.5 MILLIGRAM;
     Route: 048
     Dates: start: 20111114, end: 20111114
  2. LEVORA 0.15/30-21 [Concomitant]
     Indication: CONTRACEPTION
     Route: 048
     Dates: start: 20100101

REACTIONS (1)
  - MENSTRUATION IRREGULAR [None]
